FAERS Safety Report 14861005 (Version 1)
Quarter: 2018Q2

REPORT INFORMATION
  Report Type: Spontaneous
  Country: US (occurrence: US)
  Receive Date: 20180508
  Receipt Date: 20180508
  Transmission Date: 20180711
  Serious: Yes (Other)
  Sender: FDA-Public Use
  Company Number: US-PURACAP PHARMACEUTICAL LLC-2018EPC00231

PATIENT
  Sex: Male

DRUGS (1)
  1. EQUATE NITETIME COLD AND FLU [Suspect]
     Active Substance: ACETAMINOPHEN\DEXTROMETHORPHAN HYDROBROMIDE\DOXYLAMINE SUCCINATE

REACTIONS (1)
  - Hallucination [Recovering/Resolving]
